FAERS Safety Report 10466687 (Version 1)
Quarter: 2014Q3

REPORT INFORMATION
  Report Type: Spontaneous
  Country: US (occurrence: None)
  Receive Date: 20140919
  Receipt Date: 20140919
  Transmission Date: 20150326
  Serious: Yes (Disabling, Other)
  Sender: FDA-Public Use
  Company Number: None

PATIENT
  Age: 63 Year
  Sex: Male

DRUGS (2)
  1. METHYLPHENIDATE 54MG ER MALLINCKRODT [Suspect]
     Active Substance: METHYLPHENIDATE
     Indication: ATTENTION DEFICIT/HYPERACTIVITY DISORDER
     Dosage: 2 X 54MG Q AM, TAKEN BY MOUTH.
     Route: 048
  2. METHYLPHENIDATE 54MG ER MALLINCKRODT [Suspect]
     Active Substance: METHYLPHENIDATE
     Indication: IRRITABILITY
     Dosage: 2 X 54MG Q AM, TAKEN BY MOUTH.
     Route: 048

REACTIONS (7)
  - Job dissatisfaction [None]
  - Drug intolerance [None]
  - Anger [None]
  - Product substitution issue [None]
  - Fatigue [None]
  - Drug ineffective [None]
  - Irritability [None]

NARRATIVE: CASE EVENT DATE: 20140701
